FAERS Safety Report 6004703-7 (Version None)
Quarter: 2008Q4

REPORT INFORMATION
  Report Type: 
  Country: None (occurrence: None)
  Receive Date: 20081216
  Receipt Date: 20081211
  Transmission Date: 20090506
  Serious: Yes (Hospitalization)
  Sender: FDA-Public Use
  Company Number: BR-ROXANE LABORATORIES, INC.-2008-RO-00399RO

PATIENT
  Age: 26 Year
  Sex: Female

DRUGS (2)
  1. LITHIUM CARBONATE [Suspect]
     Indication: BIPOLAR DISORDER
     Dosage: 1500MG
  2. CEFRIAXONE [Concomitant]
     Indication: PNEUMONIA BACTERIAL
     Dosage: 2G

REACTIONS (3)
  - DRUG TOXICITY [None]
  - PNEUMONIA BACTERIAL [None]
  - PROGRESSIVE CEREBELLAR DEGENERATION [None]
